FAERS Safety Report 17058429 (Version 1)
Quarter: 2019Q4

REPORT INFORMATION
  Report Type: Spontaneous
  Country: US (occurrence: US)
  Receive Date: 20191023
  Receipt Date: 20191023
  Transmission Date: 20200122
  Serious: Yes (Hospitalization)
  Sender: FDA-Public Use
  Company Number: None

PATIENT
  Age: 39 Year
  Sex: Male

DRUGS (11)
  1. BEEF LIVER POW [Concomitant]
  2. OXYCODONE [Concomitant]
     Active Substance: OXYCODONE
  3. MULTI VITAMIN [Concomitant]
     Active Substance: VITAMINS
  4. VITAMIN D3 [Concomitant]
     Active Substance: CHOLECALCIFEROL
  5. ENOXAPARIN INJ [Concomitant]
     Active Substance: ENOXAPARIN SODIUM
  6. HUMIRA [Suspect]
     Active Substance: ADALIMUMAB
     Indication: CROHN^S DISEASE
     Dosage: ?          OTHER FREQUENCY:DAY 1+DAY15;?
     Route: 058
     Dates: start: 20190722
  7. VITAMIN D [Concomitant]
     Active Substance: VITAMIN D NOS
  8. METRONIDAZOL [Concomitant]
     Active Substance: METRONIDAZOLE
  9. LEVOFLOXACIN. [Concomitant]
     Active Substance: LEVOFLOXACIN
  10. SACRO BRACE MIS [Concomitant]
  11. PREDNISONE. [Concomitant]
     Active Substance: PREDNISONE

REACTIONS (1)
  - Condition aggravated [None]

NARRATIVE: CASE EVENT DATE: 20191022
